FAERS Safety Report 8961104 (Version 1)
Quarter: 2012Q4

REPORT INFORMATION
  Report Type: 
  Country: GB (occurrence: GB)
  Receive Date: 20121212
  Receipt Date: 20121212
  Transmission Date: 20130627
  Serious: Yes (Life-Threatening, Hospitalization, Other)
  Sender: FDA-Public Use
  Company Number: GB-PFIZER INC-2007304038

PATIENT
  Age: 64 Year
  Sex: Female
  Weight: 65 kg

DRUGS (7)
  1. IBUPROFEN [Suspect]
     Indication: DRUG USE FOR UNKNOWN INDICATION
     Dosage: UNK
  2. AMOXICILLIN [Suspect]
     Indication: LOWER RESPIRATORY TRACT INFECTION
     Dosage: 500 MG ,three times daily
     Route: 048
     Dates: start: 20060508, end: 20060512
  3. NAPROXEN [Suspect]
     Indication: KNEE PAIN
     Dosage: 250 MG 3/1 DAYS
     Route: 048
     Dates: start: 20051004
  4. ADCAL-D3 [Concomitant]
     Indication: OSTEOPOROSIS PROPHYLAXIS
     Dosage: UNKNOWN 2/1 DAYS
     Route: 048
     Dates: start: 20050330, end: 20060524
  5. BUMETANIDE [Concomitant]
     Indication: OEDEMA
     Dosage: 1 MG 1/1 DAYS
     Route: 048
     Dates: start: 20051004, end: 20060524
  6. CO-CODAMOL [Concomitant]
     Indication: KNEE PAIN
     Dosage: UNKNOWN 2/1 AS NECESSARY
     Route: 048
     Dates: start: 20050301, end: 20060516
  7. KLIOVANCE [Concomitant]
     Indication: HORMONE REPLACEMENT THERAPY
     Dosage: UNKNOWN 1/1 DAYS
     Route: 048
     Dates: start: 20050331, end: 20060518

REACTIONS (5)
  - Encephalitis [Recovering/Resolving]
  - Hepatic necrosis [Recovering/Resolving]
  - Jaundice [Recovering/Resolving]
  - Liver function test abnormal [Recovering/Resolving]
  - Autoimmune hepatitis [Recovering/Resolving]
